FAERS Safety Report 22197087 (Version 1)
Quarter: 2023Q2

REPORT INFORMATION
  Report Type: Spontaneous
  Country: JP (occurrence: JP)
  Receive Date: 20230411
  Receipt Date: 20230411
  Transmission Date: 20230721
  Serious: Yes (Disabling, Other)
  Sender: FDA-Public Use
  Company Number: JP-GILEAD-2023-0622221

PATIENT
  Age: 68 Year
  Sex: Male
  Weight: 60.65 kg

DRUGS (8)
  1. EPCLUSA [Suspect]
     Active Substance: SOFOSBUVIR\VELPATASVIR
     Indication: Product used for unknown indication
     Dosage: 1 DOSAGE FORM
     Route: 048
     Dates: start: 20221112, end: 20230203
  2. AMLODIPINE [Concomitant]
     Active Substance: AMLODIPINE BESYLATE
     Indication: Hypertension
     Dosage: 2.5 MG, QD
     Route: 048
  3. URSODIOL [Concomitant]
     Active Substance: URSODIOL
     Indication: Cholelithiasis
     Dosage: 100 MG, TID
     Route: 048
  4. DIETARY SUPPLEMENT\PROBIOTICS [Concomitant]
     Active Substance: DIETARY SUPPLEMENT\PROBIOTICS NOS
     Dosage: 1 DOSAGE FORM, TID
     Route: 048
  5. MACTASE S [Concomitant]
     Dosage: 1 DOSAGE FORM, TID
     Route: 048
  6. TEPRENONE [Concomitant]
     Active Substance: TEPRENONE
     Dosage: 0.5 G, TID
     Route: 048
  7. FAMOTIDINE D EMEC [Concomitant]
     Dosage: 10 MG, QHS
     Route: 048
  8. PROPRANOLOL HYDROCHLORIDE [Concomitant]
     Active Substance: PROPRANOLOL HYDROCHLORIDE
     Dosage: 10 MG, QHS
     Route: 048

REACTIONS (1)
  - Sudden hearing loss [Recovered/Resolved]

NARRATIVE: CASE EVENT DATE: 20221202
